FAERS Safety Report 7528443-8 (Version None)
Quarter: 2011Q2

REPORT INFORMATION
  Report Type: 
  Country: None (occurrence: None)
  Receive Date: 20110607
  Receipt Date: 20110525
  Transmission Date: 20111010
  Serious: Yes (Other)
  Sender: FDA-Public Use
  Company Number: JP-ASTRAZENECA-2011SE34163

PATIENT
  Age: 67 Year
  Sex: Male

DRUGS (7)
  1. STEROID [Concomitant]
     Indication: ACUTE RESPIRATORY DISTRESS SYNDROME
  2. MEROPENEM [Suspect]
     Route: 042
  3. ANTIBIOTICS [Concomitant]
     Indication: BACTERIAL INFECTION
  4. ZYVOX [Suspect]
  5. STEROID [Concomitant]
     Indication: DISSEMINATED INTRAVASCULAR COAGULATION
  6. AMBISOME [Suspect]
     Indication: CANDIDIASIS
  7. TARGOCID [Suspect]

REACTIONS (2)
  - GAMMA-GLUTAMYLTRANSFERASE INCREASED [None]
  - BLOOD ALKALINE PHOSPHATASE INCREASED [None]
